FAERS Safety Report 26123462 (Version 1)
Quarter: 2025Q4

REPORT INFORMATION
  Report Type: Report from Study
  Country: AR (occurrence: AR)
  Receive Date: 20251204
  Receipt Date: 20251204
  Transmission Date: 20260118
  Serious: Yes (Disabling, Other)
  Sender: EMD SERONO INC
  Company Number: AR-Merck Healthcare KGaA-2025018788

PATIENT
  Sex: Female

DRUGS (1)
  1. REBIF [Suspect]
     Active Substance: INTERFERON BETA-1A
     Indication: Product used for unknown indication
     Dates: start: 20181115

REACTIONS (5)
  - Blindness [Unknown]
  - Rheumatoid arthritis [Unknown]
  - Gastritis [Unknown]
  - Hypertension [Unknown]
  - Influenza like illness [Unknown]
